FAERS Safety Report 20863936 (Version 2)
Quarter: 2022Q2

REPORT INFORMATION
  Report Type: Spontaneous
  Country: BR (occurrence: BR)
  Receive Date: 20220523
  Receipt Date: 20220603
  Transmission Date: 20220720
  Serious: Yes (Other)
  Sender: FDA-Public Use
  Company Number: BR-ABBVIE-22K-020-4401817-00

PATIENT
  Age: 56 Year
  Sex: Female

DRUGS (5)
  1. ANDROGEL [Suspect]
     Active Substance: TESTOSTERONE
     Indication: Hormone replacement therapy
     Route: 065
     Dates: start: 2016
  2. UTROGESTAN [Suspect]
     Active Substance: PROGESTERONE
     Indication: Hormone replacement therapy
     Route: 065
     Dates: start: 2016
  3. ESTRADIOL [Suspect]
     Active Substance: ESTRADIOL
     Indication: Hormone replacement therapy
     Route: 065
  4. ESTRADIOL [Suspect]
     Active Substance: ESTRADIOL
     Indication: Hormone replacement therapy
     Route: 065
     Dates: start: 2015
  5. LAMICTAL [Concomitant]
     Active Substance: LAMOTRIGINE
     Indication: Anxiety disorder
     Route: 065
     Dates: start: 2015

REACTIONS (2)
  - Type 2 diabetes mellitus [Unknown]
  - Product use issue [Unknown]
